FAERS Safety Report 26178323 (Version 1)
Quarter: 2025Q4

REPORT INFORMATION
  Report Type: Report from Study
  Country: GB (occurrence: GB)
  Receive Date: 20251219
  Receipt Date: 20251219
  Transmission Date: 20260117
  Serious: Yes (Other)
  Sender: CELLTRION
  Company Number: GB-CELLTRION INC.-2025GB045334

PATIENT

DRUGS (1)
  1. ADALIMUMAB-AATY [Suspect]
     Active Substance: ADALIMUMAB-AATY
     Indication: Rheumatoid arthritis
     Route: 058

REACTIONS (5)
  - Diabetes mellitus [Unknown]
  - Immunosuppression [Unknown]
  - Wound [Unknown]
  - Furuncle [Unknown]
  - Product dose omission issue [Unknown]
